FAERS Safety Report 10341130 (Version 1)
Quarter: 2014Q3

REPORT INFORMATION
  Report Type: Spontaneous
  Country: US (occurrence: US)
  Receive Date: 20140724
  Receipt Date: 20140724
  Transmission Date: 20150326
  Serious: Yes (Death)
  Sender: FDA-Public Use
  Company Number: US-ACTELION-A-US2014-102187

PATIENT
  Age: 51 Year
  Sex: Male

DRUGS (1)
  1. VELETRI [Suspect]
     Active Substance: EPOPROSTENOL
     Indication: PULMONARY ARTERIAL HYPERTENSION
     Dosage: 6 NG/KG, UNK
     Route: 042
     Dates: start: 20140613

REACTIONS (1)
  - Death [Fatal]

NARRATIVE: CASE EVENT DATE: 20140713
